FAERS Safety Report 9846552 (Version 4)
Quarter: 2014Q2

REPORT INFORMATION
  Report Type: Spontaneous
  Country: GB (occurrence: GB)
  Receive Date: 20140127
  Receipt Date: 20140515
  Transmission Date: 20141212
  Serious: Yes (Hospitalization)
  Sender: FDA-Public Use
  Company Number: GB-TEVA-457529ISR

PATIENT
  Age: 72 Year
  Sex: Female

DRUGS (16)
  1. ALLOPURINOL [Suspect]
     Indication: GOUT
     Dosage: 300 MILLIGRAM DAILY;
     Route: 048
     Dates: start: 20131101, end: 20140110
  2. LANSOPRAZOLE [Suspect]
     Indication: PRODUCT USED FOR UNKNOWN INDICATION
     Dosage: 30 MILLIGRAM DAILY;
     Route: 048
     Dates: start: 20131101, end: 20140110
  3. ARANESP [Suspect]
     Indication: NEPHROGENIC ANAEMIA
     Route: 058
     Dates: start: 20131014
  4. NOVOMIX [Concomitant]
     Dosage: 84 IU (INTERNATIONAL UNIT) DAILY;
     Route: 058
  5. INDAPAMIDE [Concomitant]
     Dosage: 2.5 MILLIGRAM DAILY;
     Route: 048
  6. RAMIPRIL [Concomitant]
     Dosage: 10 MILLIGRAM DAILY;
     Route: 048
  7. ASPIRIN [Concomitant]
     Dosage: 75 MILLIGRAM DAILY;
     Route: 048
  8. AMINOPHYLLINE [Concomitant]
     Dosage: MODIFIED-RELEASE TABLET
     Route: 048
  9. AMINOPHYLLINE [Concomitant]
     Dosage: 450 MILLIGRAM DAILY; MODIFIED-RELEASE TABLET
     Route: 048
  10. SIMVASTATIN [Concomitant]
     Dosage: 40 MILLIGRAM DAILY; AT NIGHT
     Route: 048
  11. DOSULEPIN [Concomitant]
     Dosage: 75 MILLIGRAM DAILY; AT NIGHT
     Route: 048
  12. SERETIDE [Concomitant]
     Dosage: 4 DOSAGE FORMS DAILY; TWO PUFFS, TWICE DAILY
     Route: 055
  13. SALBUTAMOL [Concomitant]
     Dosage: 100MCG INHALER - 2 PUFFS AS NECESSARY
     Route: 055
  14. FUROSEMIDE [Concomitant]
     Indication: FLUID OVERLOAD
  15. FUROSEMIDE [Concomitant]
     Dosage: 80 MILLIGRAM DAILY;
     Route: 048
  16. TIOTROPIUM [Concomitant]
     Dosage: 18 MILLIGRAM DAILY;

REACTIONS (9)
  - Dermatitis exfoliative [Recovered/Resolved]
  - Pruritus generalised [Unknown]
  - Rash erythematous [Unknown]
  - Wheezing [Unknown]
  - Skin exfoliation [Unknown]
  - Lymphocytic infiltration [Unknown]
  - Eczema [Unknown]
  - Parakeratosis [Unknown]
  - Drug eruption [Unknown]
